FAERS Safety Report 5776785-9 (Version None)
Quarter: 2008Q2

REPORT INFORMATION
  Report Type: 
  Country: None (occurrence: None)
  Receive Date: 20080618
  Receipt Date: 20080618
  Transmission Date: 20081010
  Serious: Yes (Other)
  Sender: FDA-Public Use
  Company Number: A0733553A

PATIENT
  Age: 52 Year
  Sex: Female

DRUGS (3)
  1. ALLI [Suspect]
  2. ZOLOFT [Concomitant]
  3. AMBIEN [Concomitant]

REACTIONS (2)
  - BREAST CANCER [None]
  - BREAST MASS [None]
